FAERS Safety Report 7551436-1 (Version None)
Quarter: 2011Q2

REPORT INFORMATION
  Report Type: 
  Country: None (occurrence: None)
  Receive Date: 20110616
  Receipt Date: 20110607
  Transmission Date: 20111010
  Serious: Yes (Hospitalization)
  Sender: FDA-Public Use
  Company Number: FR-ROCHE-781440

PATIENT
  Sex: Female
  Weight: 60 kg

DRUGS (6)
  1. NEORECORMON [Suspect]
     Dosage: DOSE: 30000 UI
     Route: 058
     Dates: start: 20110317, end: 20110317
  2. SPIRONOLACTONE [Concomitant]
  3. AZARGA [Concomitant]
     Dosage: ROUTE: OCULAR
     Route: 047
     Dates: start: 20091201
  4. PEGINTERFERON ALFA-2A [Suspect]
     Indication: HEPATITIS C
     Route: 058
     Dates: start: 20110210, end: 20110321
  5. RIBAVIRIN [Suspect]
     Indication: HEPATITIS C
     Route: 065
     Dates: start: 20110210, end: 20110321
  6. TIMOPTOL [Concomitant]
     Dosage: ROUTE: OCULAR
     Route: 047
     Dates: start: 20091201

REACTIONS (1)
  - EPILEPSY [None]
